FAERS Safety Report 7978314-8 (Version None)
Quarter: 2011Q4

REPORT INFORMATION
  Report Type: 
  Country: None (occurrence: None)
  Receive Date: 20111206
  Receipt Date: 20111128
  Transmission Date: 20120403
  Serious: Yes (Other)
  Sender: FDA-Public Use
  Company Number: 2011SP051997

PATIENT
  Age: 45 Year
  Sex: Male

DRUGS (9)
  1. HEPARIN [Concomitant]
  2. MORPHINE [Concomitant]
  3. BUSCOPAN /00005101/ [Concomitant]
  4. VENTOLIN [Concomitant]
  5. METOCLOPRAMIDE [Concomitant]
  6. PANTOPRAZOLE [Concomitant]
  7. PANTOPRZOLE [Concomitant]
  8. TEMAZEPAM [Concomitant]
  9. PEGATRON (PEGYLATED INTERFERON ALFA-2B W/RIBAVIRIN) [Suspect]
     Indication: PRODUCT USED FOR UNKNOWN INDICATION
     Dosage: 150 MCG;QW;SC
     Route: 058
     Dates: start: 20110614

REACTIONS (8)
  - LETHARGY [None]
  - HEPATOMEGALY [None]
  - HEPATIC FUNCTION ABNORMAL [None]
  - MYALGIA [None]
  - CHOLECYSTITIS CHRONIC [None]
  - APPENDICECTOMY [None]
  - PEPTIC ULCER [None]
  - GALLBLADDER POLYP [None]
